FAERS Safety Report 25003730 (Version 1)
Quarter: 2025Q1

REPORT INFORMATION
  Report Type: Spontaneous
  Country: GB (occurrence: GB)
  Receive Date: 20250224
  Receipt Date: 20250224
  Transmission Date: 20250409
  Serious: Yes (Other)
  Sender: PFIZER
  Company Number: GB-PFIZER INC-PV202500021013

PATIENT
  Sex: Female

DRUGS (1)
  1. SOMAVERT [Suspect]
     Active Substance: PEGVISOMANT
     Indication: Growth hormone deficiency
     Route: 058

REACTIONS (3)
  - Lower respiratory tract infection [Unknown]
  - Influenza [Unknown]
  - Off label use [Unknown]
